FAERS Safety Report 9934549 (Version 2)
Quarter: 2014Q1

REPORT INFORMATION
  Report Type: Spontaneous
  Country: IT (occurrence: IT)
  Receive Date: 20140228
  Receipt Date: 20140331
  Transmission Date: 20141002
  Serious: Yes (Other)
  Sender: FDA-Public Use
  Company Number: IT-WATSON-2014-03119

PATIENT
  Age: 32 Year
  Sex: Female

DRUGS (1)
  1. RISPERIDONE (UNKNOWN) [Suspect]
     Indication: PSYCHOTIC DISORDER
     Dosage: 2 MG, DAILY
     Route: 048
     Dates: start: 20130101, end: 20130821

REACTIONS (4)
  - Acute psychosis [Recovering/Resolving]
  - Product measured potency issue [Recovering/Resolving]
  - Product substitution issue [Recovering/Resolving]
  - Drug effect decreased [Recovering/Resolving]
